FAERS Safety Report 7002477-4 (Version None)
Quarter: 2010Q3

REPORT INFORMATION
  Report Type: 
  Country: None (occurrence: None)
  Receive Date: 20100920
  Receipt Date: 20100615
  Transmission Date: 20110219
  Serious: Yes (Hospitalization)
  Sender: FDA-Public Use
  Company Number: US-ASTRAZENECA-2009UW11004

PATIENT
  Age: 13043 Day
  Sex: Female

DRUGS (8)
  1. SEROQUEL [Suspect]
     Route: 048
     Dates: start: 20041214
  2. SEROQUEL [Suspect]
     Route: 048
     Dates: start: 20060306
  3. HYDROCODONE BITARTRATE AND ACETAMINOPHEN [Concomitant]
     Dosage: 5/500MG
     Dates: start: 20040817
  4. ZOLOFT [Concomitant]
     Dates: start: 20040820
  5. ZOLOFT [Concomitant]
     Dates: start: 20060306
  6. TOPAMAX [Concomitant]
     Dates: start: 20010831
  7. TOPAMAX [Concomitant]
     Dates: start: 20060306
  8. DEPAKOTE [Concomitant]
     Dosage: 500 MG BID AND 250 MG QHS
     Dates: start: 20060306

REACTIONS (1)
  - DIABETES MELLITUS [None]
